FAERS Safety Report 8589131-2 (Version None)
Quarter: 2012Q3

REPORT INFORMATION
  Report Type: 
  Country: None (occurrence: None)
  Receive Date: 20120813
  Receipt Date: 20120806
  Transmission Date: 20120928
  Serious: Yes (Hospitalization)
  Sender: FDA-Public Use
  Company Number: US-ASTELLAS-2012US006744

PATIENT
  Sex: Female
  Weight: 82 kg

DRUGS (4)
  1. PERCOCET [Concomitant]
     Indication: BREAKTHROUGH PAIN
     Dosage: 1-2 TABS PRN
     Route: 065
  2. OXYCONTIN [Concomitant]
     Indication: PRODUCT USED FOR UNKNOWN INDICATION
     Dosage: 20 MG, BID
     Route: 048
     Dates: start: 20120710
  3. ERLOTINIB HYDROCHLORIDE [Suspect]
     Indication: ADENOCARCINOMA PANCREAS
     Dosage: 150 MG, D2-5, 9-12, 16-26
     Route: 048
     Dates: start: 20120710
  4. GEMCITABINE HYDROCHLORIDE [Suspect]
     Indication: ADENOCARCINOMA PANCREAS
     Dosage: 1000 MG/M2, DAY 1,8 AND 15 OF 28
     Route: 041
     Dates: start: 20120709

REACTIONS (9)
  - INAPPROPRIATE SCHEDULE OF DRUG ADMINISTRATION [None]
  - HYPONATRAEMIA [None]
  - MENTAL STATUS CHANGES [None]
  - HYPOVOLAEMIA [None]
  - DEHYDRATION [None]
  - OVERDOSE [None]
  - ABDOMINAL PAIN [None]
  - RENAL FAILURE ACUTE [None]
  - INCORRECT DOSE ADMINISTERED [None]
